FAERS Safety Report 23787812 (Version 1)
Quarter: 2024Q2

REPORT INFORMATION
  Report Type: Spontaneous
  Country: US (occurrence: US)
  Receive Date: 20240426
  Receipt Date: 20240426
  Transmission Date: 20240716
  Serious: Yes (Other)
  Sender: FDA-Public Use
  Company Number: US-BAXTER-2024BAX017367

PATIENT
  Age: 72 Year
  Sex: Female

DRUGS (16)
  1. DOXORUBICIN [Suspect]
     Active Substance: DOXORUBICIN
     Indication: Myxofibrosarcoma
     Dosage: RECEIVED 6 CYCLES OF DOXORUBICIN FOR A CUMULATIVE DOSE OF 450 MG/M2
     Route: 065
  2. DOXORUBICIN [Suspect]
     Active Substance: DOXORUBICIN
     Indication: Metastases to kidney
     Dosage: FOLLOWED BY 11 CYCLES OF PEGYLATED LIPOSOMAL DOXORUBICIN FOR A CUMULATIVE DOSE OF 440 MG/M2
     Route: 065
  3. DOXORUBICIN [Suspect]
     Active Substance: DOXORUBICIN
     Indication: Metastases to lung
     Dosage: PEGYLATED LIPOSOMAL DOXORUBICIN WAS REINITIATED, RECEIVED 8 CYCLES OF PLD FOR A CUMULATIVE DOSE OF 3
     Route: 065
  4. GEMCITABINE [Concomitant]
     Active Substance: GEMCITABINE
     Indication: Metastases to lung
     Route: 065
  5. GEMCITABINE [Concomitant]
     Active Substance: GEMCITABINE
     Indication: Myxofibrosarcoma
  6. DOCETAXEL [Concomitant]
     Active Substance: DOCETAXEL\DOCETAXEL ANHYDROUS
     Indication: Metastases to lung
     Route: 065
  7. DOCETAXEL [Concomitant]
     Active Substance: DOCETAXEL\DOCETAXEL ANHYDROUS
     Indication: Myxofibrosarcoma
  8. OLARATUMAB [Concomitant]
     Active Substance: OLARATUMAB
     Indication: Metastases to lung
     Route: 065
  9. OLARATUMAB [Concomitant]
     Active Substance: OLARATUMAB
     Indication: Myxofibrosarcoma
  10. PAZOPANIB [Concomitant]
     Active Substance: PAZOPANIB
     Indication: Metastases to lung
     Route: 065
  11. PAZOPANIB [Concomitant]
     Active Substance: PAZOPANIB
     Indication: Myxofibrosarcoma
  12. PEMBROLIZUMAB [Concomitant]
     Active Substance: PEMBROLIZUMAB
     Indication: Metastases to lung
     Route: 065
  13. PEMBROLIZUMAB [Concomitant]
     Active Substance: PEMBROLIZUMAB
     Indication: Myxofibrosarcoma
     Dosage: 6 CYCLES OF PEMBROLIZUMAB
     Route: 065
  14. AMLODIPINE [Concomitant]
     Active Substance: AMLODIPINE BESYLATE
     Route: 065
  15. ALENDRONATE [Concomitant]
     Active Substance: ALENDRONATE SODIUM
     Route: 065
  16. OMEPRAZOLE [Concomitant]
     Active Substance: OMEPRAZOLE
     Route: 065

REACTIONS (5)
  - Renal-limited thrombotic microangiopathy [Unknown]
  - Blood creatinine increased [Unknown]
  - Proteinuria [Recovering/Resolving]
  - Oedema peripheral [Unknown]
  - Hypertension [Recovering/Resolving]
